FAERS Safety Report 5457132-9 (Version None)
Quarter: 2007Q3

REPORT INFORMATION
  Report Type: 
  Country: None (occurrence: None)
  Receive Date: 20070918
  Receipt Date: 20070110
  Transmission Date: 20080115
  Serious: No
  Sender: FDA-Public Use
  Company Number: US-ASTRAZENECA-2007UW00579

PATIENT
  Age: 56 Year
  Sex: Female
  Weight: 59 kg

DRUGS (6)
  1. SEROQUEL [Suspect]
     Indication: BIPOLAR DISORDER
     Route: 048
     Dates: start: 20061201
  2. IBUPROFEN [Interacting]
  3. EFFEXOR XR [Concomitant]
  4. LAMICTAL [Concomitant]
  5. SYNTHROID [Concomitant]
  6. KLONOPIN [Concomitant]

REACTIONS (4)
  - ANGER [None]
  - DRUG INTERACTION [None]
  - IRRITABILITY [None]
  - MUSCULOSKELETAL PAIN [None]
